FAERS Safety Report 8463916-5 (Version None)
Quarter: 2012Q2

REPORT INFORMATION
  Report Type: 
  Country: None (occurrence: None)
  Receive Date: 20120625
  Receipt Date: 20120613
  Transmission Date: 20120825
  Serious: Yes (Hospitalization)
  Sender: FDA-Public Use
  Company Number: US-ELI_LILLY_AND_COMPANY-US201010004138

PATIENT
  Sex: Male

DRUGS (33)
  1. MAGNESIUM [Concomitant]
     Dosage: UNK
     Route: 042
  2. FLOMAX [Concomitant]
     Dosage: UNK
  3. VITAMIN D [Concomitant]
     Dosage: UNK
  4. ACIDOPHILIS [Concomitant]
     Dosage: UNK
  5. FORTEO [Suspect]
     Dosage: 20 UG, QD
     Dates: start: 20100911, end: 20110401
  6. BENZTROPINE MESYLATE [Concomitant]
     Dosage: UNK
  7. LEVOTHYROXINE [Concomitant]
     Dosage: UNK
  8. PROTONIX [Concomitant]
     Dosage: UNK
  9. RISPERIDONE [Concomitant]
     Dosage: UNK
  10. CALCIUM [Concomitant]
     Dosage: UNK
  11. LACTOBACILLUS [Concomitant]
     Dosage: UNK
  12. BACTRIM [Concomitant]
     Dosage: UNK
  13. FORTEO [Suspect]
     Indication: OSTEOPOROSIS
     Dosage: 20 UG, DAILY (1/D)
     Dates: start: 20100911, end: 20110401
  14. POTASSIUM ACETATE [Concomitant]
     Dosage: UNK
     Route: 042
  15. ALLOPURINOL [Concomitant]
     Dosage: UNK
  16. PRILOSEC [Concomitant]
     Dosage: UNK
  17. FERROUS SULFATE TAB [Concomitant]
     Dosage: UNK
  18. ASPIRIN [Concomitant]
     Dosage: UNK
  19. HYDROMORPHONE HCL [Concomitant]
     Dosage: UNK
  20. PRAVASTATIN SODIUM [Concomitant]
     Dosage: UNK
  21. CIPROFLOXACIN [Concomitant]
     Dosage: UNK
  22. NORTRIPTYLINE HCL [Concomitant]
     Dosage: UNK
  23. DIAZEPAM [Concomitant]
     Dosage: UNK
  24. CITALOPRAM HYDROBROMIDE [Concomitant]
     Dosage: UNK
  25. SPIRONOLACTONE [Concomitant]
     Dosage: UNK
  26. BUMETANIDE [Concomitant]
     Dosage: UNK
  27. BISACODYL [Concomitant]
     Dosage: UNK
  28. FENTANYL [Concomitant]
     Dosage: UNK
  29. HEPARIN [Concomitant]
     Dosage: UNK
  30. DOCUSATE SODIUM [Concomitant]
     Dosage: UNK
  31. MULTI-VITAMIN [Concomitant]
     Dosage: UNK
  32. POTASSIUM ACETATE [Concomitant]
     Dosage: UNK
     Route: 048
  33. OXYGEN [Concomitant]
     Dosage: UNK

REACTIONS (6)
  - PARATHYROID DISORDER [None]
  - MUSCULOSKELETAL PAIN [None]
  - BACK PAIN [None]
  - KNEE ARTHROPLASTY [None]
  - HYPERHIDROSIS [None]
  - CONTUSION [None]
